FAERS Safety Report 6543165-8 (Version None)
Quarter: 2010Q1

REPORT INFORMATION
  Report Type: 
  Country: None (occurrence: None)
  Receive Date: 20100120
  Receipt Date: 20100114
  Transmission Date: 20100710
  Serious: Yes (Other)
  Sender: FDA-Public Use
  Company Number: CHPA2010US01179

PATIENT
  Age: 19 Year
  Sex: Female

DRUGS (1)
  1. NODOZ (NCH) [Suspect]
     Indication: HYPERVIGILANCE
     Dosage: 200 MG, ONCE/SINGLE
     Route: 048
     Dates: start: 20100113, end: 20100113

REACTIONS (2)
  - ABDOMINAL PAIN [None]
  - MUSCULAR WEAKNESS [None]
